FAERS Safety Report 7429068-5 (Version None)
Quarter: 2011Q2

REPORT INFORMATION
  Report Type: 
  Country: None (occurrence: None)
  Receive Date: 20110421
  Receipt Date: 20110413
  Transmission Date: 20111010
  Serious: Yes (Death, Hospitalization)
  Sender: FDA-Public Use
  Company Number: US-ROCHE-771274

PATIENT
  Sex: Female
  Weight: 59.4 kg

DRUGS (25)
  1. NEURONTIN [Concomitant]
     Route: 048
     Dates: start: 20100427
  2. ATERAX [Concomitant]
     Dosage: AS NEEDED (PRN).
  3. NEURONTIN [Concomitant]
     Route: 048
  4. VITAMIN D [Concomitant]
  5. CALTRATE 600 + D [Concomitant]
     Dosage: 600 OR 400 MG, 2 TABLETS DAILY
     Route: 048
     Dates: start: 20100427
  6. ACTEMRA [Suspect]
     Indication: RHEUMATOID ARTHRITIS
     Dosage: FORM:INFUSION
     Route: 042
     Dates: start: 20100512, end: 20100512
  7. PREDNISONE [Concomitant]
     Route: 048
     Dates: start: 20100427
  8. PREMPRO [Concomitant]
     Dosage: 0.3 MG/1.5 MG
  9. FLEXERIL [Concomitant]
     Dosage: THREE TIMES A DAY, AS NEEDED
     Route: 048
     Dates: start: 20100427
  10. ACTEMRA [Suspect]
     Route: 042
     Dates: start: 20110222, end: 20110222
  11. SODIUM CHLORIDE [Concomitant]
     Dosage: DOSE:3 EACH; FREQUENCY:USE AS DIRECTED.
     Route: 042
     Dates: start: 20100512, end: 20100727
  12. ACTEMRA [Suspect]
     Route: 042
     Dates: start: 20100727, end: 20100727
  13. RANITIDINE HCL [Concomitant]
     Route: 048
     Dates: start: 20100427
  14. BLACK COHOSH [Concomitant]
     Route: 048
     Dates: start: 20100427
  15. PROZAC [Concomitant]
  16. SODIUM CHLORIDE [Concomitant]
     Dosage: DOSE:3 EACH; AND FREQUENCY: USE AS DIRECTED.
     Route: 042
     Dates: start: 20100727, end: 20110312
  17. LORTAB [Concomitant]
     Dosage: 7.5 MG/500 MG
  18. ATIVAN [Concomitant]
     Dosage: AS NEEDED (PRN).
  19. METHOTREXATE [Concomitant]
  20. RESTORIL [Concomitant]
     Dosage: AT BEDTIME
     Route: 048
     Dates: start: 20100427
  21. DILTIAZEM HCL [Concomitant]
     Dosage: FORM:TABLET CONTROLLED RELEASE (CR)
     Route: 048
     Dates: start: 20100427
  22. ACTEMRA [Suspect]
     Route: 042
     Dates: start: 20100813, end: 20100813
  23. ACTEMRA [Suspect]
     Route: 042
     Dates: start: 20110309, end: 20110309
  24. PREDNISONE [Concomitant]
     Route: 048
  25. RECLAST [Concomitant]
     Dosage: ONE TIME ONLY
     Route: 042
     Dates: start: 20100623, end: 20100727

REACTIONS (2)
  - IMPAIRED HEALING [None]
  - RHEUMATOID ARTHRITIS [None]
